FAERS Safety Report 21055736 (Version 1)
Quarter: 2022Q3

REPORT INFORMATION
  Report Type: Spontaneous
  Country: US (occurrence: US)
  Receive Date: 20220708
  Receipt Date: 20220708
  Transmission Date: 20221026
  Serious: No
  Sender: FDA-Public Use
  Company Number: US-GLAXOSMITHKLINE-USCH2022AMR023286

PATIENT
  Sex: Male

DRUGS (3)
  1. NICOTINE [Suspect]
     Active Substance: NICOTINE
     Indication: Smoking cessation therapy
     Dosage: UNK
  2. NICOTINE [Suspect]
     Active Substance: NICOTINE
     Indication: Smoking cessation therapy
     Dosage: UNK
  3. NICODERM CQ [Suspect]
     Active Substance: NICOTINE
     Indication: Smoking cessation therapy
     Dosage: UNK
     Dates: end: 2021

REACTIONS (9)
  - Nausea [Recovered/Resolved]
  - Dry mouth [Recovered/Resolved]
  - Toothache [Recovered/Resolved]
  - Application site pruritus [Unknown]
  - Application site pain [Unknown]
  - Nicotine dependence [Unknown]
  - Drug tolerance increased [Unknown]
  - Wrong technique in product usage process [Unknown]
  - Drug ineffective [Unknown]
